FAERS Safety Report 9014819 (Version 2)
Quarter: 2013Q1

REPORT INFORMATION
  Report Type: Spontaneous
  Country: US (occurrence: US)
  Receive Date: 20130116
  Receipt Date: 20130130
  Transmission Date: 20140127
  Serious: Yes (Hospitalization)
  Sender: FDA-Public Use
  Company Number: US-AMGEN-USASP2012080282

PATIENT
  Age: 68 Year
  Sex: Female
  Weight: 56.69 kg

DRUGS (18)
  1. PROLIA [Suspect]
     Indication: OSTEOPOROSIS POSTMENOPAUSAL
     Dosage: 60 MG/ML, Q6MO
     Route: 058
     Dates: start: 20121101, end: 20121101
  2. CALCIUM [Concomitant]
     Indication: BLOOD CALCIUM DECREASED
     Route: 042
  3. PHENERGAN                          /00033001/ [Concomitant]
     Dosage: 25 MG/ML, UNK
     Route: 030
  4. TESSALON PERLES [Concomitant]
     Indication: COUGH
     Dosage: 100 MG, TID
     Route: 048
  5. AZITHROMYCIN [Concomitant]
     Dosage: 250 MG, UNK
     Route: 048
  6. LAC-HYDRIN [Concomitant]
     Dosage: 12 %, TID
     Route: 061
  7. TRIAMCINOLONE [Concomitant]
     Dosage: 0.1 %, TID
     Route: 061
  8. ASPIRIN [Concomitant]
     Dosage: 81 MG, QD
     Route: 048
  9. VITAMIN D /00107901/ [Concomitant]
     Dosage: 50000 UNIT, UNK
     Route: 048
  10. TYLENOL /00020001/ [Concomitant]
     Dosage: 500 MG, Q6H
     Route: 048
  11. GABAPENTIN [Concomitant]
     Indication: NEURALGIA
     Dosage: 800 MG, TID
     Route: 048
  12. VITAMIN B COMPLEX [Concomitant]
     Route: 048
  13. CALCIUM + VITAMIN D                /01483701/ [Concomitant]
     Dosage: 600 MG, UNK
     Route: 048
  14. LEVEMIR [Concomitant]
     Dosage: 100 UNIT, UNK
     Route: 058
  15. NOVOLOG [Concomitant]
     Dosage: 100 UNIT, TID
     Route: 058
  16. SKELAXIN                           /00611501/ [Concomitant]
     Indication: MUSCLE SPASMS
     Dosage: 800 MG, TID
     Route: 048
  17. TRAMADOL [Concomitant]
     Indication: PAIN
     Dosage: 50 MG, Q6H
     Route: 048
  18. PROVENTIL                          /00139501/ [Concomitant]
     Dosage: UNK UNK, Q6H
     Route: 045
     Dates: start: 20110111

REACTIONS (15)
  - Hyponatraemia [Recovered/Resolved]
  - Asthenia [Recovering/Resolving]
  - Chills [Recovered/Resolved]
  - Dyspnoea [Recovered/Resolved]
  - Blood calcium decreased [Recovered/Resolved]
  - Nausea [Unknown]
  - Pyrexia [Unknown]
  - Oropharyngeal pain [Unknown]
  - Hypoaesthesia [Unknown]
  - Paraesthesia [Unknown]
  - Joint swelling [Unknown]
  - Muscle twitching [Unknown]
  - Muscle spasms [Unknown]
  - Blood glucose fluctuation [Unknown]
  - Local swelling [Unknown]
